FAERS Safety Report 13261323 (Version 1)
Quarter: 2017Q1

REPORT INFORMATION
  Report Type: Spontaneous
  Country: US (occurrence: US)
  Receive Date: 20170222
  Receipt Date: 20170222
  Transmission Date: 20170428
  Serious: No
  Sender: FDA-Public Use
  Company Number: US-TEVA-742142ACC

PATIENT
  Sex: Male

DRUGS (11)
  1. COENZYME Q10 [Concomitant]
     Active Substance: UBIDECARENONE
     Dates: start: 201609
  2. POTASSIUM [Concomitant]
     Active Substance: POTASSIUM
     Dates: start: 201609
  3. ZINC. [Concomitant]
     Active Substance: ZINC
     Dates: start: 201607
  4. SELENIUM [Concomitant]
     Active Substance: SELENIUM
     Dates: start: 201607
  5. VITAMIN C [Concomitant]
     Active Substance: ASCORBIC ACID
     Dates: start: 201610
  6. MARINOL [Concomitant]
     Active Substance: DRONABINOL
     Dates: start: 201609
  7. CREATINE [Concomitant]
     Active Substance: CREATINE
     Dates: start: 201609
  8. GINSENG [Concomitant]
     Active Substance: ASIAN GINSENG
     Dates: start: 201609
  9. SELENIUM [Concomitant]
     Active Substance: SELENIUM
     Dates: start: 201610
  10. COPAXONE [Suspect]
     Active Substance: GLATIRAMER ACETATE
     Indication: MULTIPLE SCLEROSIS
     Dates: start: 201609
  11. VITAMIN D3 [Concomitant]
     Active Substance: CHOLECALCIFEROL
     Dates: start: 201609

REACTIONS (2)
  - Injection site reaction [Not Recovered/Not Resolved]
  - Fatigue [Not Recovered/Not Resolved]
